FAERS Safety Report 6507258-3 (Version None)
Quarter: 2009Q4

REPORT INFORMATION
  Report Type: 
  Country: None (occurrence: None)
  Receive Date: 20091221
  Receipt Date: 20091215
  Transmission Date: 20100525
  Serious: Yes (Death, Hospitalization)
  Sender: FDA-Public Use
  Company Number: PHHO2003GB10732

PATIENT
  Sex: Male
  Weight: 71.3 kg

DRUGS (12)
  1. STARLIX [Suspect]
     Dosage: LEVEL 1
     Route: 048
     Dates: start: 20030416
  2. STARLIX [Suspect]
     Dosage: LEVEL 2
     Route: 048
     Dates: end: 20030813
  3. PLACEBO PLACEBO [Suspect]
     Indication: CARDIOVASCULAR DISORDER
     Dosage: LEVEL 1
     Route: 048
     Dates: start: 20030416
  4. PLACEBO PLACEBO [Suspect]
     Dosage: LEVEL 2
     Route: 048
     Dates: end: 20030813
  5. MONOMAX [Concomitant]
     Indication: CORONARY ARTERY DISEASE
  6. SIMVASTATIN [Concomitant]
     Indication: CORONARY ARTERY DISEASE
  7. NITROGLYCERIN [Concomitant]
     Indication: ANGINA PECTORIS
  8. ASPIRIN [Concomitant]
  9. ALBUTEROL [Concomitant]
     Indication: ASTHMA
  10. ADIZEM [Concomitant]
     Indication: CORONARY ARTERY DISEASE
  11. NICORANDIL [Concomitant]
  12. RAMIPRIL [Concomitant]

REACTIONS (4)
  - CARDIAC FAILURE CONGESTIVE [None]
  - DYSPNOEA [None]
  - LEFT VENTRICULAR FAILURE [None]
  - LOWER RESPIRATORY TRACT INFECTION [None]
